FAERS Safety Report 22135916 (Version 1)
Quarter: 2023Q1

REPORT INFORMATION
  Report Type: Spontaneous
  Country: US (occurrence: None)
  Receive Date: 20230323
  Receipt Date: 20230323
  Transmission Date: 20230417
  Serious: Yes (Hospitalization, Disabling, Other)
  Sender: FDA-Public Use
  Company Number: None

PATIENT
  Age: 52 Year
  Sex: Female
  Weight: 50.8 kg

DRUGS (1)
  1. ABECMA [Suspect]
     Active Substance: IDECABTAGENE VICLEUCEL
     Indication: Plasma cell myeloma refractory
     Dosage: ONCE INTRAVENOUS
     Route: 042
     Dates: start: 20220926, end: 20220926

REACTIONS (10)
  - Cytokine release syndrome [None]
  - Gallbladder enlargement [None]
  - Aphasia [None]
  - Magnetic resonance imaging head abnormal [None]
  - Immune effector cell-associated neurotoxicity syndrome [None]
  - Therapy non-responder [None]
  - Parkinsonism [None]
  - Loss of personal independence in daily activities [None]
  - Liver function test increased [None]
  - Neurological symptom [None]

NARRATIVE: CASE EVENT DATE: 20221108
